FAERS Safety Report 9413327 (Version 2)
Quarter: 2013Q3

REPORT INFORMATION
  Report Type: Spontaneous
  Country: US (occurrence: US)
  Receive Date: 20130722
  Receipt Date: 20130808
  Transmission Date: 20140515
  Serious: Yes (Other)
  Sender: FDA-Public Use
  Company Number: US-PFIZER INC-2013212827

PATIENT
  Age: 44 Year
  Sex: Male
  Weight: 99.77 kg

DRUGS (3)
  1. LYRICA [Suspect]
     Indication: NERVE INJURY
     Dosage: 50 MG, 2X/DAY
     Route: 048
     Dates: start: 201211, end: 20130709
  2. LYRICA [Suspect]
     Indication: ARTHROPATHY
  3. TRAMADOL [Concomitant]
     Indication: NERVE INJURY
     Dosage: UNK (2 TO 4 TABLETS OF 50 MG), EVERY 4 HRS
     Route: 048

REACTIONS (10)
  - Orchitis [Unknown]
  - Eczema [Unknown]
  - Dermatitis contact [Unknown]
  - Dermatitis [Unknown]
  - Vitamin C decreased [Unknown]
  - Blood cholesterol increased [Unknown]
  - Dysuria [Not Recovered/Not Resolved]
  - Feeling abnormal [Unknown]
  - Insomnia [Unknown]
  - Pain [Not Recovered/Not Resolved]
